FAERS Safety Report 6841348-0 (Version None)
Quarter: 2010Q3

REPORT INFORMATION
  Report Type: 
  Country: None (occurrence: None)
  Receive Date: 20100714
  Receipt Date: 20070705
  Transmission Date: 20110219
  Serious: No
  Sender: FDA-Public Use
  Company Number: US-PFIZER INC-2007055716

PATIENT
  Sex: Female
  Weight: 52.7 kg

DRUGS (11)
  1. CHANTIX [Suspect]
     Indication: SMOKING CESSATION THERAPY
     Dates: start: 20070608, end: 20070622
  2. LYRICA [Concomitant]
  3. SERETIDE MITE [Concomitant]
  4. HYDROCHLOROTHIAZIDE [Concomitant]
  5. VALSARTAN [Concomitant]
  6. PREVACID [Concomitant]
     Dosage: 30 MG
  7. GLUCOPHAGE [Concomitant]
  8. ZETIA [Concomitant]
  9. ZOCOR [Concomitant]
  10. GLIPIZIDE [Concomitant]
  11. LAMISIL [Concomitant]
     Dosage: 25 MG
     Dates: start: 20070401

REACTIONS (3)
  - DYSGEUSIA [None]
  - MALAISE [None]
  - VOMITING [None]
